FAERS Safety Report 8759965 (Version 2)
Quarter: 2012Q4

REPORT INFORMATION
  Report Type: 
  Country: DE (occurrence: DE)
  Receive Date: 20120829
  Receipt Date: 20121030
  Transmission Date: 20130627
  Serious: Yes (Hospitalization)
  Sender: FDA-Public Use
  Company Number: DE-GLAXOSMITHKLINE-D0076811A

PATIENT
  Sex: Female

DRUGS (2)
  1. LAMICTAL [Suspect]
     Indication: PROPHYLAXIS
     Dosage: 50MG Twice per day
     Route: 048
  2. TREVILOR [Suspect]
     Route: 065

REACTIONS (1)
  - Pulmonary toxicity [Unknown]
